FAERS Safety Report 4418581-0 (Version None)
Quarter: 2004Q3

REPORT INFORMATION
  Report Type: 
  Country: None (occurrence: None)
  Receive Date: 20040809
  Receipt Date: 20020731
  Transmission Date: 20050211
  Serious: No
  Sender: FDA-Public Use
  Company Number: US-GLAXOSMITHKLINE-A0376558A

PATIENT
  Age: 70 Year
  Sex: Female

DRUGS (4)
  1. PAXIL [Suspect]
     Indication: ANXIETY
     Dosage: 5MG PER DAY
     Route: 048
     Dates: end: 20040201
  2. MULTI-VITAMIN [Concomitant]
  3. UNSPECIFIED DRUG [Concomitant]
  4. SYNTHROID [Concomitant]

REACTIONS (1)
  - SENSORY DISTURBANCE [None]
